FAERS Safety Report 9459660 (Version 2)
Quarter: 2013Q3

REPORT INFORMATION
  Report Type: Report from Study
  Country: JP (occurrence: JP)
  Receive Date: 20130815
  Receipt Date: 20130822
  Transmission Date: 20140515
  Serious: Yes (Death)
  Sender: FDA-Public Use
  Company Number: JP-ROCHE-1260174

PATIENT
  Age: 39 Year
  Sex: Male
  Weight: 55.1 kg

DRUGS (8)
  1. VEMURAFENIB [Suspect]
     Indication: METASTATIC MALIGNANT MELANOMA
     Route: 048
     Dates: start: 20130416, end: 20130804
  2. NAIXAN [Concomitant]
     Indication: HEADACHE
     Route: 048
     Dates: start: 20130508
  3. NEXIUM [Concomitant]
     Indication: PROPHYLAXIS AGAINST GASTROINTESTINAL ULCER
     Route: 048
     Dates: start: 20130415
  4. LYRICA [Concomitant]
     Indication: PERIPHERAL SENSORY NEUROPATHY
     Route: 048
     Dates: start: 20130415
  5. MYSER [Concomitant]
     Indication: ERYTHEMA
     Route: 061
     Dates: start: 20130501
  6. KERATINAMIN [Concomitant]
     Indication: PALMAR-PLANTAR ERYTHRODYSAESTHESIA SYNDROME
     Route: 061
     Dates: start: 20130508
  7. GOREISAN [Concomitant]
     Indication: BRAIN OEDEMA
     Route: 048
     Dates: start: 20130715
  8. RINDERON [Concomitant]
     Indication: BRAIN OEDEMA
     Route: 048
     Dates: start: 20130715

REACTIONS (1)
  - Metastases to central nervous system [Fatal]
